FAERS Safety Report 12633169 (Version 1)
Quarter: 2016Q3

REPORT INFORMATION
  Report Type: Spontaneous
  Country: US (occurrence: None)
  Receive Date: 20160808
  Receipt Date: 20160808
  Transmission Date: 20161109
  Serious: Yes (Disabling)
  Sender: FDA-Public Use
  Company Number: None

PATIENT
  Age: 31 Year
  Sex: Female
  Weight: 49.44 kg

DRUGS (23)
  1. VITAMIN E [Concomitant]
     Active Substance: .ALPHA.-TOCOPHEROL
  2. KELP [Concomitant]
     Active Substance: KELP
  3. IODINE. [Concomitant]
     Active Substance: IODINE
  4. VITAMIN C [Concomitant]
     Active Substance: ASCORBIC ACID
  5. VITAMIN D3 [Concomitant]
     Active Substance: CHOLECALCIFEROL
  6. TUMERIC [Concomitant]
     Active Substance: TURMERIC
  7. CURCUMIN [Concomitant]
     Active Substance: CURCUMIN
  8. QUERCETIN [Concomitant]
     Active Substance: QUERCETIN
  9. MULTIPLE VITAMIN [Concomitant]
     Active Substance: VITAMINS
  10. VITAMIN B12 [Concomitant]
     Active Substance: CYANOCOBALAMIN
  11. SELENIUM [Concomitant]
     Active Substance: SELENIUM
  12. CIPROFLOXACIN HCL, 500 MG AUROBINDO PHARMACEUTICALS [Suspect]
     Active Substance: CIPROFLOXACIN HYDROCHLORIDE
     Indication: ESCHERICHIA INFECTION
     Route: 048
     Dates: start: 20160516, end: 20160518
  13. FISH OIL [Concomitant]
     Active Substance: FISH OIL
  14. MAGNESIUM [Concomitant]
     Active Substance: MAGNESIUM
  15. VITAMIN K-2 [Concomitant]
  16. L-THREONATE [Concomitant]
  17. MELATONIN [Concomitant]
     Active Substance: MELATONIN
  18. RESVERATROL (RESVITALE) [Concomitant]
  19. CIPROFLOXACIN HCL, 500 MG AUROBINDO PHARMACEUTICALS [Suspect]
     Active Substance: CIPROFLOXACIN HYDROCHLORIDE
     Indication: ADENOIDITIS
     Route: 048
     Dates: start: 20160516, end: 20160518
  20. PROBIOTIC [Concomitant]
     Active Substance: PROBIOTICS NOS
  21. GASTRAZYME METHIONINE-200 [Concomitant]
  22. R-LIPOIC [Concomitant]
  23. COQ10 [Concomitant]
     Active Substance: UBIDECARENONE

REACTIONS (25)
  - Paraesthesia [None]
  - Headache [None]
  - Vision blurred [None]
  - Drug ineffective [None]
  - Peripheral coldness [None]
  - Muscular weakness [None]
  - Chest pain [None]
  - Hypoaesthesia [None]
  - Muscle tightness [None]
  - Muscle spasms [None]
  - Anxiety [None]
  - Insomnia [None]
  - Emotional distress [None]
  - Abdominal pain upper [None]
  - Pain in extremity [None]
  - Erythema [None]
  - Arthralgia [None]
  - Back pain [None]
  - Depression [None]
  - Dry mouth [None]
  - Impaired driving ability [None]
  - Arthritis reactive [None]
  - Dry eye [None]
  - Gait disturbance [None]
  - Spinal pain [None]

NARRATIVE: CASE EVENT DATE: 20160517
